FAERS Safety Report 6152805-7 (Version None)
Quarter: 2009Q2

REPORT INFORMATION
  Report Type: 
  Country: None (occurrence: None)
  Receive Date: 20090409
  Receipt Date: 20090325
  Transmission Date: 20091009
  Serious: Yes (Hospitalization)
  Sender: FDA-Public Use
  Company Number: 430015M09USA

PATIENT
  Age: 70 Year
  Sex: Male

DRUGS (14)
  1. NOVANTRONE [Suspect]
     Indication: PROSTATE CANCER
     Dosage: INTRAVENOUS
     Route: 042
     Dates: end: 20090324
  2. CETUXIMAB (CETUXIMAB) [Suspect]
     Indication: PROSTATE CANCER METASTATIC
     Dosage: 61 MG, 1 IN 1 WEEKS, INTRAVENOUS
     Route: 042
     Dates: start: 20090302, end: 20090309
  3. DURAGESIC PATCH (FENTANYL /00174601/) [Concomitant]
  4. PERCOCET [Concomitant]
  5. ZOMETA [Concomitant]
  6. ARANESP [Concomitant]
  7. MORPHINE SULFATE [Concomitant]
  8. PREDNISONE [Concomitant]
  9. MIRALAX [Concomitant]
  10. MEGACE [Concomitant]
  11. REGLAN (METOCLOPRAMIDE /00041901/) [Concomitant]
  12. OXYCODONE HCL [Concomitant]
  13. AMBIEN [Concomitant]
  14. NYSTATIN [Concomitant]

REACTIONS (11)
  - BLOOD CALCIUM DECREASED [None]
  - HAEMATOCRIT DECREASED [None]
  - HAEMOGLOBIN DECREASED [None]
  - HYDRONEPHROSIS [None]
  - LETHARGY [None]
  - LYMPHADENOPATHY [None]
  - MALIGNANT NEOPLASM PROGRESSION [None]
  - MENTAL STATUS CHANGES [None]
  - METASTASES TO LIVER [None]
  - RED BLOOD CELL COUNT DECREASED [None]
  - URINARY RETENTION [None]
